FAERS Safety Report 9230361 (Version 2)
Quarter: 2013Q2

REPORT INFORMATION
  Report Type: Spontaneous
  Country: US (occurrence: US)
  Receive Date: 20130415
  Receipt Date: 20130523
  Transmission Date: 20140414
  Serious: Yes (Other)
  Sender: FDA-Public Use
  Company Number: US-PFIZER INC-2013117713

PATIENT
  Age: 84 Year
  Sex: Female
  Weight: 38.1 kg

DRUGS (2)
  1. CHANTIX [Suspect]
     Indication: SMOKING CESSATION THERAPY
     Dosage: 0.5 MG, 1X/DAY
     Route: 048
     Dates: start: 201304, end: 201304
  2. CELEXA [Interacting]
     Dosage: UNK
     Dates: end: 201304

REACTIONS (6)
  - Drug interaction [Recovering/Resolving]
  - Serotonin syndrome [Recovering/Resolving]
  - Hyperthermia malignant [Recovering/Resolving]
  - Blood potassium decreased [Recovering/Resolving]
  - Blood glucose increased [Recovering/Resolving]
  - Blood chloride increased [Recovering/Resolving]
